FAERS Safety Report 19448975 (Version 1)
Quarter: 2021Q2

REPORT INFORMATION
  Report Type: Spontaneous
  Country: US (occurrence: US)
  Receive Date: 20210622
  Receipt Date: 20210622
  Transmission Date: 20210717
  Serious: Yes (Other)
  Sender: FDA-Public Use
  Company Number: US-GLAXOSMITHKLINE-US2021GSK134630

PATIENT
  Sex: Female

DRUGS (1)
  1. FLONASE [Suspect]
     Active Substance: FLUTICASONE PROPIONATE
     Indication: SEASONAL ALLERGY
     Dosage: UNK
     Route: 065
     Dates: start: 2013, end: 2019

REACTIONS (12)
  - Blindness [Unknown]
  - Visual impairment [Unknown]
  - Deformity [Unknown]
  - Colour blindness [Unknown]
  - Glaucoma [Unknown]
  - Extraocular muscle paresis [Unknown]
  - Vision blurred [Unknown]
  - Retinal haemorrhage [Unknown]
  - Retinal detachment [Unknown]
  - Cataract [Unknown]
  - Eye injury [Unknown]
  - Cataract operation [Unknown]

NARRATIVE: CASE EVENT DATE: 2018
